FAERS Safety Report 7597410-0 (Version None)
Quarter: 2011Q3

REPORT INFORMATION
  Report Type: 
  Country: None (occurrence: None)
  Receive Date: 20110708
  Receipt Date: 20110627
  Transmission Date: 20111222
  Serious: Yes (Hospitalization, Other)
  Sender: FDA-Public Use
  Company Number: PHHY2011US57223

PATIENT
  Age: 45 Year
  Sex: Female
  Weight: 110 kg

DRUGS (11)
  1. SINGULAIR [Concomitant]
     Dosage: 10 MG, DAILY
     Route: 048
     Dates: start: 19920116
  2. DEXLANSOPRAZOLE [Concomitant]
     Dosage: 60 MG, DAILY
     Route: 048
     Dates: start: 20100415
  3. ATENOLOL [Concomitant]
     Dosage: 50 MG, DAILY
     Dates: start: 20080115
  4. AMANTADINE HCL [Concomitant]
     Indication: MULTIPLE SCLEROSIS
     Dosage: 100 MG, DAILY
     Route: 048
     Dates: start: 20090215, end: 20110530
  5. MORPHINE [Concomitant]
     Dosage: 30 MG/24 HRS DAILY
     Route: 048
     Dates: start: 20100215
  6. VENLAFAXINE [Concomitant]
     Dosage: 140 MG, DAILY
     Route: 048
     Dates: start: 20070115
  7. INTERFERON BETA-1A [Concomitant]
     Dosage: 30 UG, WEEKLY
     Route: 030
     Dates: start: 20090815, end: 20110405
  8. EXTAVIA [Suspect]
     Route: 058
  9. LEVOTHYROXINE SODIUM [Concomitant]
     Dosage: 100 UG, (0.1 MG DAILY)
     Route: 048
     Dates: start: 19920215
  10. AMINOPYRIDINE [Concomitant]
     Indication: MULTIPLE SCLEROSIS
     Dosage: 20 MG, DAILY
     Dates: start: 20100501
  11. ALPRAZOLAM [Concomitant]
     Indication: ANXIETY
     Dosage: 0.25 MG, DAILY
     Route: 048
     Dates: start: 20091015

REACTIONS (1)
  - BLINDNESS [None]
